FAERS Safety Report 8150790-X (Version None)
Quarter: 2012Q1

REPORT INFORMATION
  Report Type: 
  Country: None (occurrence: None)
  Receive Date: 20120220
  Receipt Date: 20120213
  Transmission Date: 20120608
  Serious: No
  Sender: FDA-Public Use
  Company Number: US-BAYER-2012-014551

PATIENT
  Sex: Female

DRUGS (1)
  1. MIRENA [Suspect]
     Indication: CONTRACEPTION
     Dosage: 20 MCG/24HR, CONT
     Route: 015
     Dates: start: 20100621, end: 20110201

REACTIONS (3)
  - MEDICAL DEVICE DISCOMFORT [None]
  - ABDOMINAL PAIN LOWER [None]
  - WEIGHT INCREASED [None]
